FAERS Safety Report 5323184-X (Version None)
Quarter: 2007Q2

REPORT INFORMATION
  Report Type: 
  Country: None (occurrence: None)
  Receive Date: 20070220
  Receipt Date: 20061115
  Transmission Date: 20071010
  Serious: No
  Sender: FDA-Public Use
  Company Number: WAES 0611USA04837

PATIENT
  Age: 71 Year
  Sex: Female

DRUGS (8)
  1. JANUVIA [Suspect]
     Indication: DIABETES MELLITUS
     Dosage: 100 MG/DAILY/PO
     Route: 048
     Dates: start: 20061105, end: 20061115
  2. ACCUPRIL [Concomitant]
  3. ACCURETIC [Concomitant]
  4. FORADIL [Concomitant]
  5. SYNTHROID [Concomitant]
  6. ATENOLOL [Concomitant]
  7. METFORMIN HCL [Concomitant]
  8. SPIRONOLACTONE [Concomitant]

REACTIONS (1)
  - BLOOD GLUCOSE INCREASED [None]
